FAERS Safety Report 22090249 (Version 1)
Quarter: 2023Q1

REPORT INFORMATION
  Report Type: Spontaneous
  Country: DE (occurrence: DE)
  Receive Date: 20230313
  Receipt Date: 20230313
  Transmission Date: 20230418
  Serious: Yes (Other)
  Sender: FDA-Public Use
  Company Number: DE-ARISTO PHARMA-PANT-ROSU202302161

PATIENT
  Sex: Female

DRUGS (2)
  1. PANTOPRAZOLE [Interacting]
     Active Substance: PANTOPRAZOLE
     Indication: Product used for unknown indication
     Dosage: UNK,STARTED ONE DAY AGO
     Route: 065
     Dates: start: 20230215
  2. ROSUVASTATIN CALCIUM [Interacting]
     Active Substance: ROSUVASTATIN CALCIUM
     Indication: Blood triglycerides increased
     Dosage: 10 MILLIGRAM, QD,FILM-COATED TABLETS
     Route: 048

REACTIONS (2)
  - Drug interaction [Unknown]
  - Myalgia [Not Recovered/Not Resolved]

NARRATIVE: CASE EVENT DATE: 20230215
